FAERS Safety Report 18992950 (Version 1)
Quarter: 2021Q1

REPORT INFORMATION
  Report Type: Spontaneous
  Country: BR (occurrence: BR)
  Receive Date: 20210310
  Receipt Date: 20210310
  Transmission Date: 20210420
  Serious: Yes (Other)
  Sender: FDA-Public Use
  Company Number: BR-AMERICAN REGENT INC-2021000551

PATIENT

DRUGS (2)
  1. VENOFER [Suspect]
     Active Substance: IRON SUCROSE
     Indication: METABOLIC SURGERY
  2. VENOFER [Suspect]
     Active Substance: IRON SUCROSE
     Indication: IRON DEFICIENCY
     Dosage: 1 VIAL EVERY WEEK (PATIENT HAD CONSUMED 2 VIALS LAST YEAR)
     Route: 042
     Dates: start: 2020

REACTIONS (7)
  - Asthenia [Unknown]
  - Product availability issue [Unknown]
  - Product dose omission issue [Unknown]
  - Dizziness [Unknown]
  - Unevaluable event [Unknown]
  - Syncope [Unknown]
  - Fatigue [Unknown]
